FAERS Safety Report 15939109 (Version 1)
Quarter: 2019Q1

REPORT INFORMATION
  Report Type: Spontaneous
  Country: US (occurrence: US)
  Receive Date: 20190208
  Receipt Date: 20190208
  Transmission Date: 20190417
  Serious: No
  Sender: FDA-Public Use
  Company Number: US-PFIZER INC-2019050905

PATIENT
  Age: 60 Year
  Sex: Female
  Weight: 64.86 kg

DRUGS (1)
  1. EUCRISA [Suspect]
     Active Substance: CRISABOROLE
     Indication: ECZEMA
     Dosage: UNK UNK, 2X/DAY
     Route: 061
     Dates: start: 201901, end: 201901

REACTIONS (5)
  - Application site haemorrhage [Recovering/Resolving]
  - Application site pruritus [Unknown]
  - Application site induration [Recovering/Resolving]
  - Application site pain [Recovering/Resolving]
  - Application site fissure [Recovering/Resolving]

NARRATIVE: CASE EVENT DATE: 201901
